FAERS Safety Report 24630814 (Version 2)
Quarter: 2024Q4

REPORT INFORMATION
  Report Type: Spontaneous
  Country: US (occurrence: US)
  Receive Date: 20241118
  Receipt Date: 20241227
  Transmission Date: 20250114
  Serious: Yes (Death)
  Sender: PFIZER
  Company Number: US-PFIZER INC-202400303299

PATIENT
  Age: 79 Year
  Sex: Male
  Weight: 79.093 kg

DRUGS (1)
  1. VYNDAMAX [Suspect]
     Active Substance: TAFAMIDIS
     Indication: Cardiac amyloidosis
     Dosage: 61MG ONCE A DAY ORALLY
     Route: 048
     Dates: start: 202312, end: 20241103

REACTIONS (1)
  - Death [Fatal]

NARRATIVE: CASE EVENT DATE: 20241103
